FAERS Safety Report 7674649-7 (Version None)
Quarter: 2011Q3

REPORT INFORMATION
  Report Type: 
  Country: None (occurrence: None)
  Receive Date: 20110810
  Receipt Date: 20110802
  Transmission Date: 20111222
  Serious: Yes (Death)
  Sender: FDA-Public Use
  Company Number: GB-ROCHE-792051

PATIENT
  Sex: Male
  Weight: 118.8 kg

DRUGS (6)
  1. BEVACIZUMAB [Suspect]
     Dosage: DOSE: 900MG, LAST DOSE PRIOR TO SAE: 6 JUNE 2011
     Route: 042
     Dates: start: 20110425, end: 20110606
  2. DIOVAN HCT [Concomitant]
     Dosage: DOSE: 160/12.5
     Dates: start: 20110516
  3. TRICOR [Concomitant]
     Dates: start: 20110607
  4. CAPECITABINE [Suspect]
     Route: 048
     Dates: start: 20110425, end: 20110606
  5. RAD001 [Suspect]
     Dosage: LAST DOSE PRIOR TO SAE: 27 JUNE 2011
     Route: 065
     Dates: start: 20110425, end: 20110627
  6. OXALIPLATIN [Suspect]
     Dosage: DOSE: 220MG, LAST DOSE PRIOR TO SAE:6 JUNE 2011
     Route: 042
     Dates: start: 20110425, end: 20110606

REACTIONS (1)
  - RECTAL PERFORATION [None]
